FAERS Safety Report 6809877-3 (Version None)
Quarter: 2010Q2

REPORT INFORMATION
  Report Type: 
  Country: None (occurrence: None)
  Receive Date: 20100625
  Receipt Date: 20100615
  Transmission Date: 20101027
  Serious: Yes (Other)
  Sender: FDA-Public Use
  Company Number: DSM-2010-00921

PATIENT
  Age: 78 Year
  Sex: Female

DRUGS (6)
  1. OLMESARTAN MEDOXOMIL [Suspect]
     Indication: HYPERTENSION
     Dosage: ORAL
     Route: 048
     Dates: start: 20090301
  2. RIVOTRIL (CLONAZEPAM) (CLONAZEPAM) [Concomitant]
  3. DOLIPRANE (PARACETAMOL) (PARACETAMOL) [Concomitant]
  4. CALCIUM (CALCIUM) (CALCIUM) [Concomitant]
  5. ART (DIACEREIN) (DIACEREIN) [Concomitant]
  6. ALCASTA (ZOLEDRONIC ACID) (INJECTION) (ZOLEDRONIC ACID) [Concomitant]

REACTIONS (1)
  - HEPATITIS [None]
